FAERS Safety Report 6869003-1 (Version None)
Quarter: 2010Q3

REPORT INFORMATION
  Report Type: 
  Country: None (occurrence: None)
  Receive Date: 20100722
  Receipt Date: 20080625
  Transmission Date: 20110219
  Serious: No
  Sender: FDA-Public Use
  Company Number: US-PFIZER INC-2008054632

PATIENT
  Sex: Male
  Weight: 65.454 kg

DRUGS (4)
  1. CHANTIX [Suspect]
     Indication: SMOKING CESSATION THERAPY
     Dates: start: 20080616
  2. SPIRIVA [Concomitant]
     Indication: EMPHYSEMA
  3. MONTELUKAST SODIUM [Concomitant]
     Indication: EMPHYSEMA
  4. OXYCONTIN [Concomitant]
     Indication: BACK DISORDER

REACTIONS (2)
  - ABDOMINAL PAIN UPPER [None]
  - VOMITING [None]
